FAERS Safety Report 19285143 (Version 1)
Quarter: 2021Q2

REPORT INFORMATION
  Report Type: Spontaneous
  Country: US (occurrence: US)
  Receive Date: 20210521
  Receipt Date: 20210521
  Transmission Date: 20210717
  Serious: No
  Sender: FDA-Public Use
  Company Number: US-SUNOVION-2021SUN001640

PATIENT
  Age: 17 Year
  Sex: Male

DRUGS (4)
  1. LATUDA [Suspect]
     Active Substance: LURASIDONE HYDROCHLORIDE
     Dosage: 40 MG
     Route: 048
  2. LATUDA [Suspect]
     Active Substance: LURASIDONE HYDROCHLORIDE
     Dosage: 20 MG
     Route: 048
  3. LATUDA [Suspect]
     Active Substance: LURASIDONE HYDROCHLORIDE
     Indication: AUTISM SPECTRUM DISORDER
     Dosage: 20 MG
     Route: 048
  4. LITHIUM. [Suspect]
     Active Substance: LITHIUM
     Indication: AUTISM SPECTRUM DISORDER
     Dosage: UNK

REACTIONS (9)
  - Off label use [Unknown]
  - Ear discomfort [Unknown]
  - Tic [Unknown]
  - Headache [Unknown]
  - Condition aggravated [Unknown]
  - Grimacing [Unknown]
  - Disturbance in attention [Unknown]
  - Cognitive disorder [Unknown]
  - Dizziness [Unknown]
